FAERS Safety Report 25367840 (Version 1)
Quarter: 2025Q2

REPORT INFORMATION
  Report Type: Spontaneous
  Country: US (occurrence: US)
  Receive Date: 20250528
  Receipt Date: 20250528
  Transmission Date: 20250717
  Serious: Yes (Life-Threatening, Hospitalization, Other)
  Sender: DAITO PHARMACEUTICALS
  Company Number: US-Daito Pharmaceutical Co., Ltd.-2177540

PATIENT
  Age: 49 Year
  Sex: Female

DRUGS (3)
  1. METHOTREXATE SODIUM [Suspect]
     Active Substance: METHOTREXATE SODIUM
     Indication: Granulomatosis with polyangiitis
  2. RITUXIMAB [Concomitant]
     Active Substance: RITUXIMAB
  3. PREDNISONE [Concomitant]
     Active Substance: PREDNISONE

REACTIONS (6)
  - Toxicity to various agents [Unknown]
  - Acute respiratory failure [Recovering/Resolving]
  - Product use in unapproved indication [Unknown]
  - Hyperammonaemia [Recovering/Resolving]
  - Mycoplasma infection [Recovering/Resolving]
  - Ureaplasma infection [Recovering/Resolving]
